FAERS Safety Report 9085490 (Version 1)
Quarter: 2013Q1

REPORT INFORMATION
  Report Type: Report from Study
  Country: US (occurrence: US)
  Receive Date: 20130131
  Receipt Date: 20130131
  Transmission Date: 20140127
  Serious: No
  Sender: FDA-Public Use
  Company Number: US-ABBOTT-12P-163-1002428-00

PATIENT
  Age: 60 Year
  Sex: Female

DRUGS (8)
  1. HUMIRA [Suspect]
     Indication: PSORIASIS
     Route: 058
     Dates: start: 20120613
  2. BENAZEPRIL [Concomitant]
     Indication: HYPERTENSION
     Dosage: ONCE A DAY
  3. PRAVASTATIN [Concomitant]
     Indication: BLOOD CHOLESTEROL INCREASED
     Dosage: 10MG DAILY
  4. MENEST [Concomitant]
     Indication: HORMONE REPLACEMENT THERAPY
  5. ASPIRIN [Concomitant]
     Indication: PAIN
  6. SUDAFED [Concomitant]
     Indication: SINUS CONGESTION
  7. CLOBETASOL 0.05% [Concomitant]
     Indication: PSORIASIS
     Dosage: DAILY
  8. NASACORT [Concomitant]
     Indication: SINUSITIS

REACTIONS (3)
  - Headache [Not Recovered/Not Resolved]
  - Nausea [Not Recovered/Not Resolved]
  - Diarrhoea [Not Recovered/Not Resolved]
